FAERS Safety Report 11071503 (Version 1)
Quarter: 2015Q2

REPORT INFORMATION
  Report Type: Spontaneous
  Country: CZ (occurrence: CZ)
  Receive Date: 20150428
  Receipt Date: 20150428
  Transmission Date: 20150821
  Serious: Yes (Death, Other)
  Sender: FDA-Public Use
  Company Number: CZ-CELGENE-CZE-2015045399

PATIENT

DRUGS (2)
  1. POMALIDOMIDE [Suspect]
     Active Substance: POMALIDOMIDE
     Indication: PLASMA CELL MYELOMA
     Route: 048
  2. DEXAMETHASONE. [Concomitant]
     Active Substance: DEXAMETHASONE
     Indication: PLASMA CELL MYELOMA
     Route: 065

REACTIONS (14)
  - Infection [Fatal]
  - Nausea [Fatal]
  - Asthenia [Fatal]
  - Embolism [Unknown]
  - Thrombosis [Unknown]
  - Decreased appetite [Fatal]
  - Fatigue [Fatal]
  - Anaemia [Fatal]
  - Neuropathy peripheral [Fatal]
  - Thrombocytopenia [Fatal]
  - Vomiting [Fatal]
  - Neutropenia [Fatal]
  - Diarrhoea [Fatal]
  - Plasma cell myeloma [Unknown]
